FAERS Safety Report 9281044 (Version 2)
Quarter: 2013Q2

REPORT INFORMATION
  Report Type: Spontaneous
  Country: IT (occurrence: IT)
  Receive Date: 20130509
  Receipt Date: 20130522
  Transmission Date: 20140414
  Serious: Yes (Other)
  Sender: FDA-Public Use
  Company Number: IT-GLAXOSMITHKLINE-B0890350A

PATIENT
  Age: 75 Year
  Sex: Male

DRUGS (10)
  1. HYDROXYZINE [Suspect]
     Dosage: 25MG PER DAY
     Route: 048
  2. METHYLPREDNISOLONE [Suspect]
     Dosage: 25MG PER DAY
     Route: 042
  3. RANITIDINE [Suspect]
     Dosage: 20MG TWICE PER DAY
  4. VANCOMYCIN [Suspect]
     Route: 065
  5. GENTAMICIN [Suspect]
     Route: 065
  6. RIFAMPICIN [Suspect]
     Route: 065
  7. DAPTOMYCIN [Suspect]
     Route: 065
  8. CEFTRIAXONE [Suspect]
     Route: 065
  9. N-ACETYLCYSTEINE [Suspect]
     Route: 065
  10. MONTELUKAST [Suspect]
     Route: 065

REACTIONS (4)
  - Eosinophil count increased [Unknown]
  - Hepatic enzyme increased [Unknown]
  - Epstein-Barr virus infection [Unknown]
  - Hepatic function abnormal [Unknown]
